FAERS Safety Report 7017430-4 (Version None)
Quarter: 2010Q3

REPORT INFORMATION
  Report Type: 
  Country: None (occurrence: None)
  Receive Date: 20100928
  Receipt Date: 20100924
  Transmission Date: 20110219
  Serious: Yes (Hospitalization, Other)
  Sender: FDA-Public Use
  Company Number: US-ASTRAZENECA-2007UW05663

PATIENT
  Age: 48 Year
  Sex: Male
  Weight: 101.6 kg

DRUGS (29)
  1. SEROQUEL [Suspect]
     Indication: DEPRESSION
     Dosage: 25-200 MG
     Route: 048
     Dates: start: 20030101, end: 20080101
  2. SEROQUEL [Suspect]
     Dosage: 25 MG-100 MG
     Route: 048
     Dates: start: 20030512
  3. SEROQUEL [Suspect]
     Route: 048
     Dates: end: 20060101
  4. SEROQUEL [Suspect]
     Route: 048
     Dates: start: 20061027
  5. RISPERDAL [Concomitant]
     Indication: DEPRESSION
     Dates: start: 19990916, end: 20030424
  6. RISPERDAL [Concomitant]
     Dates: start: 20030619, end: 20060319
  7. RISPERDAL [Concomitant]
     Dates: start: 20050311
  8. RISPERDAL [Concomitant]
     Route: 048
     Dates: end: 20060101
  9. FLUOXETINE [Concomitant]
     Route: 065
  10. AMBIEN CR [Concomitant]
     Route: 048
  11. AMBIEN CR [Concomitant]
     Route: 048
     Dates: start: 20080915
  12. BUSPAR [Concomitant]
     Dosage: 10 MG TO 15 MG
     Route: 048
  13. DIPHENHYDRAMINE HCL [Concomitant]
     Route: 065
  14. HYDROCODONE BITARTRATE AND ACETAMINOPHEN [Concomitant]
     Route: 065
  15. IBUPROFEN [Concomitant]
     Route: 048
  16. NEURONTIN [Concomitant]
     Route: 065
  17. ZYPREXA [Concomitant]
     Indication: DEPRESSION
     Dosage: 5 - 10 MG AT NIGHT
     Route: 048
     Dates: end: 20080716
  18. ZYPREXA [Concomitant]
     Dates: start: 20030221
  19. PENICILLIN [Concomitant]
     Route: 048
  20. NORVASC [Concomitant]
     Dosage: 5 MG TO 10 MG
     Route: 065
  21. ABILIFY [Concomitant]
     Dates: start: 20040101
  22. GEODON [Concomitant]
     Dates: start: 20040101, end: 20050101
  23. REMERON [Concomitant]
     Dates: start: 20080806
  24. CADUET [Concomitant]
     Dates: start: 20080630
  25. SINEQUAN [Concomitant]
     Dosage: 50 MG HS 3 DAYS THEN 2 HS THEN 3 HS
     Route: 048
     Dates: start: 20080829
  26. TRAZODONE HCL [Concomitant]
     Indication: SLEEP DISORDER
     Dosage: 100 MG 1 OR 2 HS
     Dates: start: 20080723, end: 20080806
  27. LEXAPRO [Concomitant]
     Dates: start: 20080529, end: 20080716
  28. VALIUM [Concomitant]
     Route: 048
     Dates: end: 20080723
  29. VALIUM [Concomitant]
     Dosage: 5 MG DAILY PRN
     Dates: start: 20080926

REACTIONS (14)
  - ARTHRALGIA [None]
  - ARTHRITIS [None]
  - BLOOD GLUCOSE INCREASED [None]
  - DIABETES MELLITUS INADEQUATE CONTROL [None]
  - DIPLOPIA [None]
  - ERECTILE DYSFUNCTION [None]
  - FIBROMA [None]
  - HALLUCINATION [None]
  - HEADACHE [None]
  - ILL-DEFINED DISORDER [None]
  - INSOMNIA [None]
  - JOINT SWELLING [None]
  - TOOTH DISORDER [None]
  - TYPE 2 DIABETES MELLITUS [None]
